FAERS Safety Report 5592355-X (Version None)
Quarter: 2008Q1

REPORT INFORMATION
  Report Type: 
  Country: None (occurrence: None)
  Receive Date: 20080111
  Receipt Date: 20080107
  Transmission Date: 20080703
  Serious: Yes (Hospitalization)
  Sender: FDA-Public Use
  Company Number: 2008S1000188

PATIENT
  Age: 36 Year
  Sex: Male

DRUGS (3)
  1. VALACYCLOVIR [Suspect]
     Indication: HERPES VIRUS INFECTION
     Dosage: 500 MG;TWICE A DAY
     Route: 048
  2. CYCLOSPORINE [Concomitant]
  3. PREDNISONE [Concomitant]

REACTIONS (13)
  - ANXIETY [None]
  - BLOOD CREATININE INCREASED [None]
  - CONFUSIONAL STATE [None]
  - COTARD'S SYNDROME [None]
  - DEHYDRATION [None]
  - DELUSION [None]
  - DEPRESSION [None]
  - DIARRHOEA [None]
  - DYSARTHRIA [None]
  - ENCEPHALITIS HERPES [None]
  - FATIGUE [None]
  - FEAR [None]
  - SCREAMING [None]
